FAERS Safety Report 9630504 (Version 3)
Quarter: 2014Q2

REPORT INFORMATION
  Report Type: Report from Study
  Country: CA (occurrence: CA)
  Receive Date: 20131018
  Receipt Date: 20140430
  Transmission Date: 20141212
  Serious: Yes (Other)
  Sender: FDA-Public Use
  Company Number: CA-ROCHE-1217690

PATIENT
  Age: 51 Year
  Sex: Female
  Weight: 79.4 kg

DRUGS (8)
  1. RITUXAN [Suspect]
     Indication: RHEUMATOID ARTHRITIS
     Dosage: LAST DOSE WAS ON 07/NOV/2012, 15/MAY/2013
     Route: 042
     Dates: start: 20120409
  2. DIPHENHYDRAMINE HCL [Concomitant]
     Route: 048
     Dates: start: 20120409
  3. ACETAMINOPHEN [Concomitant]
     Route: 048
     Dates: start: 20120409
  4. METHYLPREDNISOLON [Concomitant]
     Route: 042
     Dates: start: 20120409
  5. HYZAAR [Concomitant]
  6. LEFLUNOMIDE [Concomitant]
  7. CELEBREX [Concomitant]
  8. LANSOPRAZOLE [Concomitant]

REACTIONS (3)
  - Upper limb fracture [Unknown]
  - Rheumatoid arthritis [Unknown]
  - Fall [Unknown]
